FAERS Safety Report 19640133 (Version 5)
Quarter: 2022Q4

REPORT INFORMATION
  Report Type: Spontaneous
  Country: US (occurrence: US)
  Receive Date: 20210730
  Receipt Date: 20221202
  Transmission Date: 20230113
  Serious: Yes (Other)
  Sender: FDA-Public Use
  Company Number: US-PFIZER INC-202100928086

PATIENT
  Age: 74 Year
  Sex: Female

DRUGS (4)
  1. IBRANCE [Suspect]
     Active Substance: PALBOCICLIB
     Indication: Breast cancer female
     Dosage: 75 MG, 1X/DAY (ONE TABLET DAILY)
     Dates: start: 20200723
  2. IBRANCE [Suspect]
     Active Substance: PALBOCICLIB
     Indication: Malignant melanoma
     Dosage: 100 MG
     Dates: start: 20200723
  3. IBRANCE [Suspect]
     Active Substance: PALBOCICLIB
     Indication: Breast cancer female
     Dosage: 75 MG, CYCLIC (TAKE 1 TABLET BY MOUTH DAILY ON DAYS 1 THROUGH 21 EVERY 28 DAY CYCLE)
     Route: 048
     Dates: start: 20210209
  4. PROLIA [Concomitant]
     Active Substance: DENOSUMAB
     Dosage: UNK

REACTIONS (19)
  - Leukopenia [Unknown]
  - Neutropenia [Not Recovered/Not Resolved]
  - Anaemia [Unknown]
  - Diarrhoea [Not Recovered/Not Resolved]
  - Fatigue [Unknown]
  - Headache [Unknown]
  - Nausea [Unknown]
  - Oral herpes [Unknown]
  - Stomatitis [Not Recovered/Not Resolved]
  - Illness [Unknown]
  - Gastrooesophageal reflux disease [Unknown]
  - Pain [Not Recovered/Not Resolved]
  - Muscle spasms [Unknown]
  - White blood cell count decreased [Unknown]
  - Nerve injury [Unknown]
  - Burning sensation [Unknown]
  - Hypoaesthesia [Unknown]
  - Oral pain [Unknown]
  - Muscle spasms [Unknown]
